FAERS Safety Report 10064040 (Version 1)
Quarter: 2014Q2

REPORT INFORMATION
  Report Type: Spontaneous
  Country: JP (occurrence: JP)
  Receive Date: 20140408
  Receipt Date: 20140408
  Transmission Date: 20141212
  Serious: Yes (Death, Other)
  Sender: FDA-Public Use
  Company Number: JP-ALEXION PHARMACEUTICALS INC.-A201401062

PATIENT
  Sex: 0

DRUGS (4)
  1. SOLIRIS [Suspect]
     Indication: HAEMOLYTIC URAEMIC SYNDROME
     Dosage: 900 MG, QW
     Route: 042
     Dates: start: 20140226, end: 20140319
  2. SOLIRIS [Suspect]
     Dosage: 300 MG, QD
     Route: 042
     Dates: start: 20140226, end: 20140305
  3. MIRACLID [Concomitant]
     Indication: GRAFT VERSUS HOST DISEASE
     Dosage: UNK
     Route: 065
     Dates: start: 201402, end: 201403
  4. REMICADE [Concomitant]
     Indication: GRAFT VERSUS HOST DISEASE
     Dosage: UNK
     Route: 065
     Dates: start: 201402, end: 201403

REACTIONS (5)
  - Respiratory failure [Fatal]
  - Graft versus host disease [Fatal]
  - Disseminated intravascular coagulation [Fatal]
  - Renal failure [Unknown]
  - Pulmonary oedema [Unknown]
